FAERS Safety Report 4287173-9 (Version None)
Quarter: 2004Q1

REPORT INFORMATION
  Report Type: 
  Country: None (occurrence: None)
  Receive Date: 20040126
  Receipt Date: 20031017
  Transmission Date: 20041129
  Serious: No
  Sender: FDA-Public Use
  Company Number: USA030845123

PATIENT
  Age: 69 Year
  Sex: Female
  Weight: 60 kg

DRUGS (5)
  1. FORTEO [Suspect]
     Indication: OSTEOPOROSIS
     Dates: start: 20030818
  2. PRILOSEC [Concomitant]
  3. CORTISONE [Concomitant]
  4. COZAAR [Concomitant]
  5. VICODIN [Concomitant]

REACTIONS (4)
  - CHILLS [None]
  - HYPERHIDROSIS [None]
  - INCREASED APPETITE [None]
  - MUSCLE CRAMP [None]
